FAERS Safety Report 9286516 (Version 1)
Quarter: 2013Q2

REPORT INFORMATION
  Report Type: Spontaneous
  Country: US (occurrence: None)
  Receive Date: 20130503
  Receipt Date: 20130503
  Transmission Date: 20140414
  Serious: Yes (Other)
  Sender: FDA-Public Use
  Company Number: KAD201304-000496

PATIENT
  Age: 47 Year
  Sex: Female

DRUGS (3)
  1. RIBAVIRIN (RIBAVIRIN) [Suspect]
     Indication: CHRONIC HEPATITIS C
  2. PEGYLATED INTERFERON ALFA-2A (PEGYLATED INTERFERON ALFA-2A) [Suspect]
     Indication: CHRONIC HEPATITIS C
  3. TELAPREVIR (TELAPREVIR) [Suspect]
     Indication: CHRONIC HEPATITIS C

REACTIONS (4)
  - Cutaneous sarcoidosis [None]
  - Lymphadenopathy [None]
  - Pulmonary mass [None]
  - Lung infiltration [None]
